FAERS Safety Report 6340022-7 (Version None)
Quarter: 2009Q3

REPORT INFORMATION
  Report Type: 
  Country: None (occurrence: None)
  Receive Date: 20090903
  Receipt Date: 20090901
  Transmission Date: 20100115
  Serious: Yes (Hospitalization)
  Sender: FDA-Public Use
  Company Number: US-ABBOTT-08P-163-0486863-00

PATIENT
  Sex: Female
  Weight: 52.664 kg

DRUGS (4)
  1. HUMIRA [Suspect]
     Indication: CROHN'S DISEASE
     Dates: start: 20071101, end: 20080201
  2. HUMIRA [Suspect]
     Dates: start: 20080901
  3. REMICADE [Concomitant]
     Indication: RHEUMATOID ARTHRITIS
     Dosage: EVERY SIX WEEKS
     Route: 042
  4. FORTAO [Concomitant]
     Indication: RHEUMATOID ARTHRITIS

REACTIONS (1)
  - INTESTINAL OBSTRUCTION [None]
